FAERS Safety Report 17291170 (Version 1)
Quarter: 2020Q1

REPORT INFORMATION
  Report Type: Spontaneous
  Country: US (occurrence: US)
  Receive Date: 20200121
  Receipt Date: 20200121
  Transmission Date: 20200409
  Serious: Yes (Death, Hospitalization)
  Sender: FDA-Public Use
  Company Number: US-STRIDES ARCOLAB LIMITED-2020SP000499

PATIENT
  Age: 53 Year
  Sex: Female

DRUGS (2)
  1. MYCOPHENOLATE MOFETIL. [Suspect]
     Active Substance: MYCOPHENOLATE MOFETIL
     Indication: SYSTEMIC SCLERODERMA
     Dosage: UNK
     Route: 065
  2. CIPROFLOXACIN W/METRONIDAZOLE [Concomitant]
     Indication: LARGE INTESTINE INFECTION
     Dosage: UNK
     Route: 065

REACTIONS (11)
  - Clostridium difficile infection [Recovered/Resolved]
  - Cardiac arrest [Unknown]
  - Gastrointestinal perforation [Fatal]
  - Abdominal pain [Recovered/Resolved]
  - Off label use [Unknown]
  - Hypotension [Unknown]
  - Systemic candida [Fatal]
  - Tachypnoea [Recovered/Resolved]
  - Haematochezia [Recovered/Resolved]
  - Large intestine perforation [Recovered/Resolved]
  - Colitis ischaemic [Recovered/Resolved]
